FAERS Safety Report 8819689 (Version 1)
Quarter: 2012Q4

REPORT INFORMATION
  Report Type: 
  Country: US (occurrence: US)
  Receive Date: 20121001
  Receipt Date: 20121001
  Transmission Date: 20130627
  Serious: No
  Sender: FDA-Public Use
  Company Number: US-B.I. PHARMACEUTICALS,INC./RIDGEFIELD-2012-BP-23519BP

PATIENT
  Age: 65 Year
  Sex: Male
  Weight: 59 kg

DRUGS (16)
  1. SPIRIVA [Suspect]
     Indication: CHRONIC OBSTRUCTIVE PULMONARY DISEASE
     Dosage: 18 mcg
     Route: 055
     Dates: start: 201201
  2. SPIRIVA [Suspect]
     Route: 048
     Dates: start: 20120925, end: 20120925
  3. AMBIEN [Concomitant]
     Indication: SLEEP DISORDER
     Dosage: 10 mg
     Route: 048
     Dates: start: 2011
  4. COREG [Concomitant]
     Dosage: 50 mg
     Route: 048
     Dates: start: 2011
  5. COUMADIN [Concomitant]
     Indication: THROMBOSIS
     Dosage: 5 mg
     Route: 048
     Dates: start: 2011
  6. LISINOPRIL [Concomitant]
     Indication: HYPERTENSION
     Dosage: 5 mg
     Route: 048
     Dates: start: 2011
  7. ZYPREXA [Concomitant]
     Dosage: 10 mg
     Route: 048
     Dates: start: 2011
  8. SIMVASTAIN [Concomitant]
     Indication: BLOOD CHOLESTEROL INCREASED
     Dosage: 20 mg
     Route: 048
     Dates: start: 2011
  9. KLOR CON [Concomitant]
     Dosage: 20 mEq
     Route: 048
     Dates: start: 2011
  10. MAGNESIUM OXIDE [Concomitant]
     Dosage: 800 mg
     Route: 048
     Dates: start: 2011
  11. LASIX [Concomitant]
     Indication: FLUID RETENTION
     Dosage: 40 mg
     Route: 048
     Dates: start: 2011
  12. ASPIRIN [Concomitant]
     Indication: THROMBOSIS
     Dosage: 81 mg
     Route: 048
     Dates: start: 2011
  13. ALENDRONATE SODIUM [Concomitant]
     Route: 048
     Dates: start: 2011
  14. VICODIN [Concomitant]
     Indication: AMPUTATION STUMP PAIN
     Route: 048
     Dates: start: 2011
  15. VALIUM [Concomitant]
     Indication: ANXIETY
     Dosage: 20 mg
     Route: 048
     Dates: start: 2011
  16. VENTOLIN [Concomitant]
     Indication: CHRONIC OBSTRUCTIVE PULMONARY DISEASE
     Route: 055
     Dates: start: 2011

REACTIONS (1)
  - Incorrect route of drug administration [Recovered/Resolved]
